FAERS Safety Report 8959496 (Version 1)
Quarter: 2012Q4

REPORT INFORMATION
  Report Type: 
  Country: US (occurrence: US)
  Receive Date: 20121212
  Receipt Date: 20121212
  Transmission Date: 20130627
  Serious: Yes (Other)
  Sender: FDA-Public Use
  Company Number: US-JNJFOC-20121202407

PATIENT

DRUGS (9)
  1. TRAMADOL HYDROCHLORIDE [Suspect]
     Indication: PAIN
     Route: 065
  2. ACETAMINOPHEN [Suspect]
     Route: 065
  3. ACETAMINOPHEN [Suspect]
     Indication: PAIN
     Route: 065
  4. OXYCODONE/ACETAMINOPHEN [Suspect]
     Indication: PAIN
     Route: 065
  5. WARFARIN [Interacting]
     Indication: PULMONARY EMBOLISM
     Route: 065
  6. WARFARIN [Interacting]
     Indication: HEART VALVE REPLACEMENT
     Route: 065
  7. WARFARIN [Interacting]
     Indication: DEEP VEIN THROMBOSIS
     Route: 065
  8. WARFARIN [Interacting]
     Indication: ATRIAL FIBRILLATION
     Route: 065
  9. WARFARIN [Interacting]
     Indication: ANTICOAGULANT THERAPY
     Route: 065

REACTIONS (2)
  - International normalised ratio increased [Unknown]
  - Drug interaction [Unknown]
